FAERS Safety Report 7072841-6 (Version None)
Quarter: 2010Q4

REPORT INFORMATION
  Report Type: 
  Country: None (occurrence: None)
  Receive Date: 20101029
  Receipt Date: 20100309
  Transmission Date: 20110411
  Serious: No
  Sender: FDA-Public Use
  Company Number: A0850969A

PATIENT
  Age: 65 Year
  Sex: Male
  Weight: 90 kg

DRUGS (4)
  1. SERETIDE [Suspect]
     Indication: EMPHYSEMA
     Dosage: 1PUFF TWICE PER DAY
     Dates: start: 20091222
  2. COFFEE [Suspect]
     Indication: PRODUCT USED FOR UNKNOWN INDICATION
  3. SPIRIVA [Concomitant]
     Dosage: 1PUFF PER DAY
     Dates: start: 20091201
  4. ACETYLCYSTEINE [Concomitant]
     Dosage: 8ML PER DAY
     Dates: start: 20091201

REACTIONS (2)
  - ORAL DISCOMFORT [None]
  - THROAT IRRITATION [None]
